FAERS Safety Report 22655245 (Version 1)
Quarter: 2023Q2

REPORT INFORMATION
  Report Type: Spontaneous
  Country: US (occurrence: US)
  Receive Date: 20230629
  Receipt Date: 20230629
  Transmission Date: 20230721
  Serious: No
  Sender: FDA-Public Use
  Company Number: US-GE HEALTHCARE-2023CSU002896

PATIENT
  Age: 54 Year
  Sex: Female
  Weight: 88 kg

DRUGS (3)
  1. OMNIPAQUE [Suspect]
     Active Substance: IOHEXOL
     Indication: Computerised tomogram abdomen
     Dosage: 100 ML, SINGLE
     Route: 042
     Dates: start: 20230207, end: 20230207
  2. OMNIPAQUE [Suspect]
     Active Substance: IOHEXOL
     Indication: Abdominal pain upper
  3. OMNIPAQUE [Suspect]
     Active Substance: IOHEXOL
     Indication: Hiatus hernia

REACTIONS (5)
  - Skin warm [Recovered/Resolved]
  - Blood pressure increased [Recovering/Resolving]
  - Urticaria [Recovered/Resolved]
  - Erythema [Recovered/Resolved]
  - Pruritus [Recovered/Resolved]

NARRATIVE: CASE EVENT DATE: 20230207
